FAERS Safety Report 5573869-5 (Version None)
Quarter: 2007Q4

REPORT INFORMATION
  Report Type: 
  Country: None (occurrence: None)
  Receive Date: 20071226
  Receipt Date: 20071214
  Transmission Date: 20080405
  Serious: Yes (Life-Threatening, Other)
  Sender: FDA-Public Use
  Company Number: IE-PFIZER INC-2007096871

PATIENT
  Sex: Male
  Weight: 51 kg

DRUGS (16)
  1. CHANTIX [Suspect]
     Indication: SMOKING CESSATION THERAPY
     Route: 048
  2. ATORVASTATIN [Concomitant]
     Route: 048
  3. METFORMIN HCL [Concomitant]
     Route: 048
     Dates: start: 20070926, end: 20071117
  4. WARFARIN SODIUM [Concomitant]
     Route: 048
  5. ACETYLSALICYLIC ACID SRT [Concomitant]
     Route: 048
     Dates: start: 20070926, end: 20071009
  6. ISOSORBIDE MN [Concomitant]
     Route: 048
  7. CLOPIDOGREL [Concomitant]
     Route: 048
     Dates: start: 20070926, end: 20071009
  8. NEBIVOLOL [Concomitant]
     Route: 048
  9. VERAPAMIL HYDROCHLORIDE [Concomitant]
     Route: 048
  10. RAMIPRIL [Concomitant]
     Route: 048
  11. GLICLAZIDE [Concomitant]
     Route: 048
  12. ESOMEPRAZOLE [Concomitant]
  13. ENOXAPARIN SODIUM [Concomitant]
  14. ACYCLOVIR [Concomitant]
     Dates: start: 20071008, end: 20071014
  15. AMOXICILLIN [Concomitant]
     Dates: start: 20071008, end: 20071014
  16. CLARITHROMYCIN [Concomitant]
     Dates: start: 20071008, end: 20071014

REACTIONS (6)
  - ASTHENIA [None]
  - ATRIAL FIBRILLATION [None]
  - BLOOD PRESSURE DECREASED [None]
  - BRADYCARDIA [None]
  - COLD SWEAT [None]
  - DYSPNOEA [None]
